FAERS Safety Report 10469537 (Version 5)
Quarter: 2014Q3

REPORT INFORMATION
  Report Type: Report from Study
  Country: US (occurrence: US)
  Receive Date: 20140923
  Receipt Date: 20140930
  Transmission Date: 20150326
  Serious: Yes (Life-Threatening, Hospitalization)
  Sender: FDA-Public Use
  Company Number: US-009507513-1408USA009370

PATIENT
  Age: 63 Year
  Sex: Female
  Weight: 60.4 kg

DRUGS (21)
  1. QVAR [Concomitant]
     Active Substance: BECLOMETHASONE DIPROPIONATE
     Indication: DYSPNOEA
     Dosage: UNK
     Dates: start: 2010
  2. ONDANSETRON [Concomitant]
     Active Substance: ONDANSETRON
     Indication: NAUSEA
     Dosage: UNK
     Dates: start: 201210
  3. PEMBROLIZUMAB. [Suspect]
     Active Substance: PEMBROLIZUMAB
     Indication: NON-SMALL CELL LUNG CANCER
     Dosage: 10 MG/KG (556MG), QOW
     Route: 042
     Dates: start: 20130828, end: 20140730
  4. PEMBROLIZUMAB. [Suspect]
     Active Substance: PEMBROLIZUMAB
     Dosage: 10 MG/KG, QOW
     Route: 042
     Dates: start: 20140827
  5. DOCUSATE SODIUM. [Concomitant]
     Active Substance: DOCUSATE SODIUM
     Indication: CONSTIPATION
     Dosage: UNK
     Dates: start: 201210
  6. CIPROFLOXACIN. [Concomitant]
     Active Substance: CIPROFLOXACIN
     Indication: PROPHYLAXIS URINARY TRACT INFECTION
     Dosage: 500 MG, QD
     Route: 048
     Dates: start: 20140312
  7. DIFLUPREDNATE [Concomitant]
     Active Substance: DIFLUPREDNATE
     Indication: CATARACT OPERATION
     Dosage: 0.05 %, BID
     Route: 047
     Dates: start: 20140611
  8. ILEVRO [Concomitant]
     Active Substance: NEPAFENAC
     Indication: CATARACT OPERATION
     Dosage: 0.3 %, BID
     Route: 047
     Dates: start: 20140608
  9. BUPROPION HYDROCHLORIDE. [Concomitant]
     Active Substance: BUPROPION HYDROCHLORIDE
     Indication: PROPHYLAXIS
     Dosage: UNK
     Dates: start: 2007
  10. LORAZEPAM. [Concomitant]
     Active Substance: LORAZEPAM
     Indication: ANXIETY
     Dosage: UNK
     Dates: start: 201208
  11. TIOTROPIUM BROMIDE [Concomitant]
     Active Substance: TIOTROPIUM BROMIDE
     Indication: DYSPNOEA
     Dosage: UNK
     Dates: start: 2012
  12. BENADRYL [Concomitant]
     Active Substance: DIPHENHYDRAMINE HYDROCHLORIDE
     Indication: PITYRIASIS ROSEA
     Dosage: 25 MG, QD
     Route: 048
     Dates: start: 20140525
  13. SYNTHROID [Concomitant]
     Active Substance: LEVOTHYROXINE SODIUM
     Indication: HYPOTHYROIDISM
     Dosage: 112 MICROGRAM, QD
     Route: 048
     Dates: start: 20140721
  14. DOCUSATE SODIUM. [Concomitant]
     Active Substance: DOCUSATE SODIUM
     Dosage: 100 MG, BID
     Route: 048
     Dates: start: 20140809
  15. METOPROLOL [Concomitant]
     Active Substance: METOPROLOL
     Indication: ATRIAL FIBRILLATION
     Dosage: UNK
     Dates: start: 201205
  16. ALBUTEROL. [Concomitant]
     Active Substance: ALBUTEROL
     Indication: DYSPNOEA
     Dosage: UNK
     Dates: start: 2010
  17. CALCIUM CITRATE [Concomitant]
     Active Substance: CALCIUM CITRATE
     Indication: ROUTINE HEALTH MAINTENANCE
     Dosage: UNK
     Dates: start: 2010
  18. ATROVENT HFA [Concomitant]
     Active Substance: IPRATROPIUM BROMIDE
     Indication: DYSPNOEA
     Dosage: UNK
     Dates: start: 201210
  19. ALBUTEROL (+) IPRATROPIUM BROMIDE [Concomitant]
     Indication: DYSPNOEA
     Dosage: UNK
     Dates: start: 201211
  20. OXYCODONE [Concomitant]
     Active Substance: OXYCODONE
     Indication: PAIN
     Dosage: UNK
     Dates: start: 201210
  21. BENADRYL [Concomitant]
     Active Substance: DIPHENHYDRAMINE HYDROCHLORIDE
     Indication: PITYRIASIS ROSEA
     Dosage: 1 %, QD
     Route: 061
     Dates: start: 20140525

REACTIONS (1)
  - Dyspnoea [Recovering/Resolving]

NARRATIVE: CASE EVENT DATE: 20140809
